FAERS Safety Report 5050787-2 (Version None)
Quarter: 2006Q3

REPORT INFORMATION
  Report Type: 
  Country: None (occurrence: None)
  Receive Date: 20060707
  Receipt Date: 20060626
  Transmission Date: 20061208
  Serious: Yes (Other)
  Sender: FDA-Public Use
  Company Number: HQWYE391826JUN06

PATIENT
  Age: 50 Year
  Sex: Female

DRUGS (2)
  1. PANTOPRAZOLE SODIUM [Suspect]
     Dosage: 40 MG 1X PER 1 DAY
     Route: 048
     Dates: start: 20050801
  2. GABAPENTIN [Concomitant]

REACTIONS (4)
  - ALOPECIA [None]
  - CUTANEOUS LUPUS ERYTHEMATOSUS [None]
  - ERYTHEMA MULTIFORME [None]
  - PRURITUS GENERALISED [None]
